FAERS Safety Report 4313292-4 (Version None)
Quarter: 2004Q1

REPORT INFORMATION
  Report Type: 
  Country: None (occurrence: None)
  Receive Date: 20040305
  Receipt Date: 20040305
  Transmission Date: 20041129
  Serious: Yes (Other)
  Sender: FDA-Public Use
  Company Number: None

PATIENT
  Age: 49 Year
  Sex: Female
  Weight: 92.5338 kg

DRUGS (4)
  1. GLEEVEC [Suspect]
     Indication: CHRONIC MYELOID LEUKAEMIA
     Dosage: 400 MG PO QD
     Route: 048
     Dates: start: 20030424
  2. ADVAIR DISKUS 100/50 [Concomitant]
  3. RHINOCORT [Concomitant]
  4. ALBUTEROL [Concomitant]

REACTIONS (1)
  - SKIN HYPERPIGMENTATION [None]
